FAERS Safety Report 4884559-6 (Version None)
Quarter: 2005Q4

REPORT INFORMATION
  Report Type: 
  Country: None (occurrence: None)
  Receive Date: 20051201
  Receipt Date: 20050914
  Transmission Date: 20060501
  Serious: No
  Sender: FDA-Public Use
  Company Number: 2005PV002110

PATIENT
  Sex: Female

DRUGS (4)
  1. BYETTA [Suspect]
     Dosage: 10 MCG; BID; SC
     Route: 058
  2. GLUCOPHAGE [Concomitant]
  3. LANTUS [Concomitant]
  4. NOVOLOG [Concomitant]

REACTIONS (1)
  - MALAISE [None]
